FAERS Safety Report 4862876-3 (Version None)
Quarter: 2005Q4

REPORT INFORMATION
  Report Type: 
  Country: None (occurrence: None)
  Receive Date: 20051129
  Receipt Date: 20050916
  Transmission Date: 20060501
  Serious: No
  Sender: FDA-Public Use
  Company Number: WAES 0509USA02489

PATIENT
  Age: 68 Year
  Sex: Female
  Weight: 56.6996 kg

DRUGS (3)
  1. ZETIA [Suspect]
     Indication: BLOOD TRIGLYCERIDES ABNORMAL
     Dosage: 10 MG/DAILY/PO
     Route: 048
     Dates: start: 20050827
  2. DIOVAN [Concomitant]
  3. ZOCOR [Concomitant]

REACTIONS (2)
  - CHILLS [None]
  - HYPERHIDROSIS [None]
